FAERS Safety Report 7917844-1 (Version None)
Quarter: 2011Q4

REPORT INFORMATION
  Report Type: 
  Country: None (occurrence: None)
  Receive Date: 20111116
  Receipt Date: 20111104
  Transmission Date: 20120403
  Serious: Yes (Other)
  Sender: FDA-Public Use
  Company Number: PHEH2011US008701

PATIENT
  Sex: Male

DRUGS (2)
  1. ANTIHYPERTENSIVE DRUGS [Concomitant]
     Indication: BLOOD PRESSURE
     Dosage: UNK
  2. DIOVAN HCT [Suspect]
     Dosage: UNK

REACTIONS (1)
  - RENAL PAIN [None]
